FAERS Safety Report 8791629 (Version 1)
Quarter: 2012Q4

REPORT INFORMATION
  Report Type: 
  Country: BO (occurrence: BO)
  Receive Date: 20120918
  Receipt Date: 20120918
  Transmission Date: 20130627
  Serious: Yes (Other)
  Sender: FDA-Public Use
  Company Number: BO-PFIZER INC-2012227142

PATIENT
  Age: 67 Year
  Sex: Female

DRUGS (1)
  1. LIPITOR [Suspect]
     Dosage: 20 mg, 1x/day
     Dates: start: 2008

REACTIONS (2)
  - Cartilage atrophy [Unknown]
  - Liver disorder [Unknown]
